FAERS Safety Report 5455466-5 (Version None)
Quarter: 2007Q3

REPORT INFORMATION
  Report Type: 
  Country: None (occurrence: None)
  Receive Date: 20070918
  Receipt Date: 20061212
  Transmission Date: 20080115
  Serious: No
  Sender: FDA-Public Use
  Company Number: US-ASTRAZENECA-2006UW21674

PATIENT
  Age: 17943 Day
  Sex: Female
  Weight: 104.5 kg

DRUGS (10)
  1. SEROQUEL [Suspect]
     Indication: BIPOLAR DISORDER
     Dosage: 100-500 MG
     Route: 048
     Dates: start: 20060810, end: 20060815
  2. SEROQUEL [Suspect]
     Indication: DEPRESSION
     Dosage: 100-500 MG
     Route: 048
     Dates: start: 20060810, end: 20060815
  3. SEROQUEL [Suspect]
     Indication: AGITATION
     Dosage: 100-500 MG
     Route: 048
     Dates: start: 20060810, end: 20060815
  4. SEROQUEL [Suspect]
     Dosage: 50-100 MG
     Route: 048
  5. SEROQUEL [Suspect]
     Dosage: 50-100 MG
     Route: 048
  6. SEROQUEL [Suspect]
     Dosage: 50-100 MG
     Route: 048
  7. CYMBALTA [Concomitant]
     Indication: BIPOLAR I DISORDER
     Route: 048
     Dates: start: 20051201
  8. CYMBALTA [Concomitant]
     Indication: DEPRESSION
     Route: 048
     Dates: start: 20051201
  9. LAMICTAL [Concomitant]
     Indication: BIPOLAR I DISORDER
     Route: 048
     Dates: start: 20050601
  10. LAMICTAL [Concomitant]
     Indication: DEPRESSION
     Route: 048
     Dates: start: 20050601

REACTIONS (3)
  - DYSPHAGIA [None]
  - SOMNOLENCE [None]
  - SUFFOCATION FEELING [None]
